FAERS Safety Report 19364489 (Version 1)
Quarter: 2021Q2

REPORT INFORMATION
  Report Type: Spontaneous
  Country: US (occurrence: US)
  Receive Date: 20210602
  Receipt Date: 20210602
  Transmission Date: 20210717
  Serious: No
  Sender: FDA-Public Use
  Company Number: None

PATIENT

DRUGS (2)
  1. MIDAZOLAM. [Concomitant]
     Active Substance: MIDAZOLAM
  2. MIDAZOLAM. [Suspect]
     Active Substance: MIDAZOLAM

REACTIONS (1)
  - Product label confusion [None]
